FAERS Safety Report 17783816 (Version 1)
Quarter: 2020Q2

REPORT INFORMATION
  Report Type: Spontaneous
  Country: TW (occurrence: TW)
  Receive Date: 20200513
  Receipt Date: 20200513
  Transmission Date: 20200714
  Serious: Yes (Other)
  Sender: FDA-Public Use
  Company Number: NVSC2020TW127821

PATIENT
  Sex: Female

DRUGS (14)
  1. CARBOPLATIN. [Suspect]
     Active Substance: CARBOPLATIN
     Indication: LUNG NEOPLASM MALIGNANT
     Dosage: UNK
     Route: 065
     Dates: start: 20180807
  2. TAGRISSO [Concomitant]
     Active Substance: OSIMERTINIB
     Indication: LUNG NEOPLASM MALIGNANT
     Dosage: 80 MG, UNKNOWN
     Route: 065
     Dates: start: 20190116
  3. TAGRISSO [Concomitant]
     Active Substance: OSIMERTINIB
     Indication: LYMPHADENOPATHY
  4. AFATINIB [Concomitant]
     Active Substance: AFATINIB
     Indication: LYMPHADENOPATHY
     Dosage: UNK
     Route: 065
     Dates: start: 20190614, end: 20200409
  5. SAVOLITINIB. [Concomitant]
     Active Substance: SAVOLITINIB
     Indication: LYMPHADENOPATHY
  6. ERLOTINIB [Concomitant]
     Active Substance: ERLOTINIB
     Indication: LUNG NEOPLASM MALIGNANT
     Dosage: UNK
     Route: 065
     Dates: start: 20181030
  7. ERLOTINIB [Concomitant]
     Active Substance: ERLOTINIB
     Indication: LYMPHADENOPATHY
  8. SAVOLITINIB. [Concomitant]
     Active Substance: SAVOLITINIB
     Indication: LUNG NEOPLASM MALIGNANT
     Dosage: 300 MG, UNKNOWN
     Route: 065
  9. CISPLATIN. [Suspect]
     Active Substance: CISPLATIN
     Indication: LUNG NEOPLASM MALIGNANT
     Dosage: UNK
     Route: 065
     Dates: start: 20170717
  10. PEMETREXED. [Concomitant]
     Active Substance: PEMETREXED
     Indication: LUNG NEOPLASM MALIGNANT
     Dosage: UNK
     Route: 065
     Dates: start: 20180717
  11. PEMETREXED. [Concomitant]
     Active Substance: PEMETREXED
     Indication: LYMPHADENOPATHY
  12. CARBOPLATIN. [Suspect]
     Active Substance: CARBOPLATIN
     Indication: LYMPHADENOPATHY
     Dosage: UNK
     Route: 065
     Dates: start: 20190614
  13. CISPLATIN. [Suspect]
     Active Substance: CISPLATIN
     Indication: LYMPHADENOPATHY
  14. AFATINIB [Concomitant]
     Active Substance: AFATINIB
     Indication: LUNG NEOPLASM MALIGNANT
     Dosage: 40 MG, UNKNOWN
     Route: 065
     Dates: start: 20170831

REACTIONS (4)
  - Lung neoplasm malignant [Unknown]
  - Limb discomfort [Unknown]
  - Interstitial lung disease [Unknown]
  - Malignant neoplasm progression [Unknown]

NARRATIVE: CASE EVENT DATE: 20181113
